FAERS Safety Report 15146462 (Version 2)
Quarter: 2018Q3

REPORT INFORMATION
  Report Type: Spontaneous
  Country: ES (occurrence: ES)
  Receive Date: 20180715
  Receipt Date: 20180715
  Transmission Date: 20181010
  Serious: Yes (Death, Hospitalization)
  Sender: FDA-Public Use
  Company Number: PHHY2018ES045711

PATIENT
  Age: 37 Year
  Sex: Male

DRUGS (6)
  1. BUSULFANO [Interacting]
     Active Substance: BUSULFAN
     Indication: ACUTE MYELOID LEUKAEMIA
     Dosage: 240 MG, TOTAL
     Route: 042
     Dates: start: 20130822, end: 20130824
  2. METILPREDNISOLONA [Interacting]
     Active Substance: METHYLPREDNISOLONE
     Indication: ACUTE MYELOID LEUKAEMIA
     Dosage: 80 MG, TOTAL
     Route: 042
     Dates: start: 20130827, end: 20130827
  3. FLUDARABINE [Interacting]
     Active Substance: FLUDARABINE PHOSPHATE
     Indication: ACUTE MYELOID LEUKAEMIA
     Dosage: 240 MG, TOTAL
     Route: 042
     Dates: start: 20130821, end: 20130824
  4. CYCLOPHOSPHAMIDE. [Interacting]
     Active Substance: CYCLOPHOSPHAMIDE
     Indication: ACUTE MYELOID LEUKAEMIA
     Dosage: 2 G, TOTAL
     Route: 042
     Dates: start: 20130824, end: 20130825
  5. MESNA. [Concomitant]
     Active Substance: MESNA
     Indication: ACUTE MYELOID LEUKAEMIA
     Dosage: 8 G, TOTAL
     Route: 042
     Dates: start: 20130825, end: 20130826
  6. CICLOSPORIN [Suspect]
     Active Substance: CYCLOSPORINE
     Indication: PRODUCT USED FOR UNKNOWN INDICATION
     Dosage: UNK
     Route: 065

REACTIONS (1)
  - Cytomegalovirus hepatitis [Fatal]

NARRATIVE: CASE EVENT DATE: 20130909
